FAERS Safety Report 20642398 (Version 1)
Quarter: 2022Q1

REPORT INFORMATION
  Report Type: Spontaneous
  Country: US (occurrence: None)
  Receive Date: 20220325
  Receipt Date: 20220325
  Transmission Date: 20220423
  Serious: Yes (Hospitalization)
  Sender: FDA-Public Use
  Company Number: None

PATIENT
  Sex: Male
  Weight: 82.7 kg

DRUGS (2)
  1. PEMBROLIZUMAB [Suspect]
     Active Substance: PEMBROLIZUMAB
     Dates: end: 20220309
  2. ALIMTA [Suspect]
     Active Substance: PEMETREXED DISODIUM
     Dates: end: 20220309

REACTIONS (5)
  - Dyspnoea [None]
  - Hyperventilation [None]
  - Oxygen saturation decreased [None]
  - Atrial fibrillation [None]
  - Ejection fraction decreased [None]

NARRATIVE: CASE EVENT DATE: 20220319
